FAERS Safety Report 11030963 (Version 1)
Quarter: 2015Q2

REPORT INFORMATION
  Report Type: Spontaneous
  Country: US (occurrence: None)
  Receive Date: 20150414
  Receipt Date: 20150414
  Transmission Date: 20150821
  Serious: No
  Sender: FDA-Public Use
  Company Number: None

PATIENT
  Age: 62 Year
  Sex: Female

DRUGS (1)
  1. FORTEO [Suspect]
     Active Substance: TERIPARATIDE
     Indication: OSTEOPOROSIS
     Dosage: PEN, QD, SUBCUTANEOUS
     Route: 058
     Dates: start: 20150316, end: 20150412

REACTIONS (2)
  - Pain [None]
  - Asthma [None]

NARRATIVE: CASE EVENT DATE: 20150317
